FAERS Safety Report 19624928 (Version 13)
Quarter: 2023Q2

REPORT INFORMATION
  Report Type: Other
  Country: US (occurrence: None)
  Receive Date: 20210728
  Receipt Date: 20230508
  Transmission Date: 20230721
  Serious: Yes (Life-Threatening, Hospitalization)
  Sender: FDA-Public Use
  Company Number: US-ROCHE-2877114

PATIENT
  Age: 47 Year
  Sex: Female

DRUGS (17)
  1. OCRELIZUMAB [Suspect]
     Active Substance: OCRELIZUMAB
     Indication: Multiple sclerosis
     Dosage: THEN 600 MG EVERY 6 MONTH?DATE OF SECOND ADMINISTRATION: 13/MAR/2020, 19/AUG/2020
     Route: 042
     Dates: start: 20200228
  2. OCRELIZUMAB [Suspect]
     Active Substance: OCRELIZUMAB
     Route: 042
     Dates: start: 20210416, end: 20210416
  3. OCRELIZUMAB [Suspect]
     Active Substance: OCRELIZUMAB
     Route: 042
     Dates: start: 20220124, end: 20220124
  4. BIOTIN [Concomitant]
     Active Substance: BIOTIN
     Dates: start: 201910
  5. CLARITIN [Concomitant]
     Active Substance: LORATADINE
     Dates: start: 201812
  6. HYDROCHLOROTHIAZIDE [Concomitant]
     Active Substance: HYDROCHLOROTHIAZIDE
     Dates: start: 2017
  7. PROTONIX [Concomitant]
     Active Substance: PANTOPRAZOLE SODIUM
     Dates: start: 2013
  8. PROVIGIL [Concomitant]
     Active Substance: MODAFINIL
     Dates: start: 2015
  9. TYLENOL [Concomitant]
     Active Substance: ACETAMINOPHEN
     Dates: start: 2013
  10. VITAMIN C [Concomitant]
     Active Substance: ASCORBIC ACID
     Dates: start: 201912
  11. VITAMIN B COMPLEX [Concomitant]
     Active Substance: CYANOCOBALAMIN\DEXPANTHENOL\NIACINAMIDE\PYRIDOXINE HYDROCHLORIDE\RIBOFLAVIN 5^-PHOSPHATE SODIUM\THIA
     Dates: start: 2017
  12. SAXENDA [Concomitant]
     Active Substance: LIRAGLUTIDE
     Dates: start: 201912
  13. IBUPROFEN [Concomitant]
     Active Substance: IBUPROFEN
     Dates: start: 2013
  14. GABAPENTIN [Concomitant]
     Active Substance: GABAPENTIN
  15. MELOXICAM [Concomitant]
     Active Substance: MELOXICAM
     Dates: start: 20200901, end: 20200929
  16. FUROSEMIDE [Concomitant]
     Active Substance: FUROSEMIDE
     Dates: start: 202009
  17. ATIVAN [Concomitant]
     Active Substance: LORAZEPAM
     Dates: start: 20200901, end: 20200929

REACTIONS (2)
  - Urinary tract infection [Recovered/Resolved]
  - Acute respiratory failure [Recovered/Resolved]

NARRATIVE: CASE EVENT DATE: 20200920
